FAERS Safety Report 19861081 (Version 4)
Quarter: 2022Q2

REPORT INFORMATION
  Report Type: Report from Study
  Country: US (occurrence: US)
  Receive Date: 20210921
  Receipt Date: 20220422
  Transmission Date: 20220721
  Serious: Yes (Other)
  Sender: FDA-Public Use
  Company Number: US-NOVARTISPH-NVSC2021US210885

PATIENT
  Age: 53 Year
  Sex: Male

DRUGS (3)
  1. KESIMPTA [Suspect]
     Active Substance: OFATUMUMAB
     Indication: Multiple sclerosis
     Dosage: UNK UNK, QMO
     Route: 058
  2. KESIMPTA [Suspect]
     Active Substance: OFATUMUMAB
     Indication: Relapsing-remitting multiple sclerosis
     Dosage: UNK (SOLUTION)
     Route: 065
     Dates: start: 20040101
  3. KESIMPTA [Suspect]
     Active Substance: OFATUMUMAB
     Dosage: 20 MG, QMO
     Route: 058
     Dates: start: 20210716

REACTIONS (9)
  - COVID-19 [Recovered/Resolved]
  - Cough [Recovering/Resolving]
  - Fatigue [Recovering/Resolving]
  - Seizure [Unknown]
  - Gait disturbance [Recovering/Resolving]
  - Personality change [Recovering/Resolving]
  - Mobility decreased [Recovering/Resolving]
  - Anxiety [Unknown]
  - Inappropriate affect [Recovering/Resolving]

NARRATIVE: CASE EVENT DATE: 20211124
